FAERS Safety Report 7372430-X (Version None)
Quarter: 2011Q1

REPORT INFORMATION
  Report Type: 
  Country: None (occurrence: None)
  Receive Date: 20110324
  Receipt Date: 20110321
  Transmission Date: 20110831
  Serious: Yes (Death, Other)
  Sender: FDA-Public Use
  Company Number: US-JNJFOC-970623-107053896

PATIENT
  Sex: Male
  Weight: 99.79 kg

DRUGS (6)
  1. VICODIN [Concomitant]
     Route: 065
     Dates: start: 19970101
  2. KLONOPIN [Concomitant]
     Route: 065
     Dates: start: 19970113
  3. ULTRAM [Suspect]
     Indication: BACK PAIN
     Route: 048
     Dates: start: 19970514
  4. ACETAMINOPHEN [Concomitant]
     Route: 065
  5. HYDROCODONE BITARTRATE [Concomitant]
     Route: 065
  6. PROPOXYPHENE [Concomitant]
     Route: 065

REACTIONS (10)
  - ECCHYMOSIS [None]
  - SUBARACHNOID HAEMORRHAGE [None]
  - SKULL FRACTURE [None]
  - LACERATION [None]
  - RESPIRATORY DEPRESSION [None]
  - OVERDOSE [None]
  - BRAIN INJURY [None]
  - DRUG LEVEL [None]
  - FALL [None]
  - CONVULSION [None]
